FAERS Safety Report 23673484 (Version 7)
Quarter: 2024Q3

REPORT INFORMATION
  Report Type: Spontaneous
  Country: US (occurrence: US)
  Receive Date: 20240326
  Receipt Date: 20240918
  Transmission Date: 20241016
  Serious: No
  Sender: PFIZER
  Company Number: US-PFIZER INC-202400066730

PATIENT
  Age: 6 Year
  Sex: Female
  Weight: 17.234 kg

DRUGS (1)
  1. GENOTROPIN [Suspect]
     Active Substance: SOMATROPIN
     Indication: Short stature
     Dosage: ONCE A DAY, EVENING

REACTIONS (5)
  - Wrong technique in device usage process [Unknown]
  - Drug dose omission by device [Unknown]
  - Device breakage [Unknown]
  - Device leakage [Unknown]
  - Device information output issue [Unknown]
